FAERS Safety Report 6270667-4 (Version None)
Quarter: 2009Q3

REPORT INFORMATION
  Report Type: 
  Country: None (occurrence: None)
  Receive Date: 20090716
  Receipt Date: 20090707
  Transmission Date: 20100115
  Serious: Yes (Other)
  Sender: FDA-Public Use
  Company Number: PHHY2009CA28149

PATIENT
  Sex: Female

DRUGS (1)
  1. ACLASTA [Suspect]
     Dosage: UNK
     Dates: start: 20080702

REACTIONS (6)
  - BLOOD CALCIUM DECREASED [None]
  - CHILLS [None]
  - FATIGUE [None]
  - GENERALISED ERYTHEMA [None]
  - NAUSEA [None]
  - PYREXIA [None]
